FAERS Safety Report 20986609 (Version 1)
Quarter: 2022Q2

REPORT INFORMATION
  Report Type: Spontaneous
  Country: GB (occurrence: GB)
  Receive Date: 20220621
  Receipt Date: 20220621
  Transmission Date: 20220721
  Serious: Yes (Hospitalization, Other)
  Sender: FDA-Public Use
  Company Number: GB-ViiV Healthcare Limited-GB2022EME094875

PATIENT

DRUGS (1)
  1. DOVATO [Suspect]
     Active Substance: DOLUTEGRAVIR SODIUM\LAMIVUDINE
     Indication: Product used for unknown indication
     Dosage: UNK UNK, QD, 50/300MG

REACTIONS (4)
  - Fall [Unknown]
  - Skull fracture [Unknown]
  - Upper limb fracture [Unknown]
  - Wrist fracture [Unknown]
